FAERS Safety Report 9500032 (Version 1)
Quarter: 2013Q3

REPORT INFORMATION
  Report Type: Spontaneous
  Country: NZ (occurrence: NZ)
  Receive Date: 20130905
  Receipt Date: 20130905
  Transmission Date: 20140515
  Serious: Yes (Hospitalization)
  Sender: FDA-Public Use
  Company Number: NZ-ACCORD-019202

PATIENT
  Age: 51 Year
  Sex: Female

DRUGS (2)
  1. CITALOPRAM [Suspect]
  2. QUETIAPINE FUMARATE [Suspect]

REACTIONS (7)
  - Intentional overdose [Recovered/Resolved]
  - Fall [Recovered/Resolved]
  - Hypothermia [Recovered/Resolved]
  - Electrocardiogram abnormal [Recovered/Resolved]
  - Suicide attempt [Recovered/Resolved]
  - Pneumonia aspiration [Recovered/Resolved]
  - Hypoaesthesia [Not Recovered/Not Resolved]
